FAERS Safety Report 7605087-0 (Version None)
Quarter: 2011Q3

REPORT INFORMATION
  Report Type: 
  Country: None (occurrence: None)
  Receive Date: 20110713
  Receipt Date: 20091123
  Transmission Date: 20111222
  Serious: Yes (Death, Hospitalization, Other)
  Sender: FDA-Public Use
  Company Number: US-BAYER-200940864NA

PATIENT
  Age: 82 Year
  Sex: Female
  Weight: 69 kg

DRUGS (35)
  1. TRASYLOL [Suspect]
     Indication: PRODUCT USED FOR UNKNOWN INDICATION
     Dosage: 1 ML, ONCE (INITIAL DOSE)
     Route: 042
     Dates: start: 20011204, end: 20011204
  2. XANAX [Concomitant]
     Indication: ANXIETY
     Dosage: 0.25 MG, BID PRN
     Route: 048
     Dates: start: 20011120, end: 20011211
  3. MAALOX [Concomitant]
     Dosage: 15 ML, UNK
     Route: 048
  4. DARVOCET [Concomitant]
     Dosage: UNK
     Dates: start: 19990101
  5. RED BLOOD CELLS [Concomitant]
     Dosage: 3 U, UNK
     Route: 042
     Dates: start: 20011204, end: 20011204
  6. LEVAQUIN [Concomitant]
     Dosage: 500 MG, UNK
     Dates: start: 20011121
  7. TRASYLOL [Suspect]
     Dosage: 200 ML (LOADING DOSE)
     Route: 042
     Dates: start: 20011204, end: 20011204
  8. POTASSIUM CHLORIDE [Concomitant]
     Dosage: 10 MEQ, UNK
     Dates: start: 20011127
  9. SODIUM CHLORIDE [Concomitant]
     Dosage: UNK
     Dates: start: 20011127, end: 20011207
  10. MILK OF MAGNESIA TAB [Concomitant]
     Dosage: 10 ML, PRN
     Route: 048
     Dates: start: 20011127, end: 20011129
  11. AMICAR [Concomitant]
     Dosage: 5 MG, UNK
     Route: 042
     Dates: start: 20011204
  12. ALBUMIN (HUMAN) [Concomitant]
     Dosage: 50 ML, UNK
     Route: 042
     Dates: start: 20011204
  13. COLACE [Concomitant]
     Dosage: 100 MG, QD
     Route: 048
     Dates: start: 20011127, end: 20011127
  14. COMPAZINE [Concomitant]
     Dosage: 10 MG, (IM/IV)
     Dates: start: 20011127, end: 20011127
  15. VALIUM [Concomitant]
     Dosage: 2.5 MG, (W/ SIP OF WATER 1HR PRIOR TO TRANSPORT TO O.R.)
     Route: 048
     Dates: start: 20011204, end: 20011204
  16. TRASYLOL [Suspect]
     Dosage: 50 ML/HR (INFUSION)
     Route: 042
     Dates: start: 20011204, end: 20011204
  17. LASIX [Concomitant]
     Dosage: 40 MG, QD
     Route: 048
     Dates: start: 20011127, end: 20011205
  18. METHYLPREDNISOLONE [Concomitant]
     Dosage: 1 G, UNK
     Route: 042
     Dates: start: 20011204
  19. CEFAZOLIN [Concomitant]
     Dosage: 2 G, UNK
     Route: 042
     Dates: start: 20011204
  20. LACTATED RINGER'S [Concomitant]
     Dosage: 1000 ML, UNK
     Route: 042
     Dates: start: 20011204, end: 20011204
  21. LANOXIN [Concomitant]
     Dosage: 1/2 TAB, QD
     Route: 048
     Dates: start: 20011120, end: 20011205
  22. ACETAMINOPHEN [Concomitant]
     Dosage: 650 MG, Q4HR
     Route: 048
     Dates: start: 20011127, end: 20011129
  23. REGLAN [Concomitant]
     Dosage: 10 MG, (ORAL/INTRAVENOUS)
     Dates: start: 20011127, end: 20011127
  24. LASIX [Concomitant]
     Dosage: 20 MG, UNK
     Dates: start: 20011127
  25. POTASSIUM CHLORIDE [Concomitant]
     Dosage: 20 MEQ, UNK
     Route: 048
     Dates: start: 20011128, end: 20011204
  26. PROTAMINE SULFATE [Concomitant]
     Dosage: 460 MG, UNK
     Route: 042
     Dates: start: 20011204
  27. MANNITOL [Concomitant]
     Dosage: 150 ML, UNK
     Route: 042
     Dates: start: 20011204
  28. SCOPOLAMINE [HYOSCINE HYDROBROMIDE] [Concomitant]
     Dosage: 0.2 MG, (ONE HR PRIOR TO TRANSPORT TO O.R.)
     Route: 030
     Dates: start: 20011204, end: 20011204
  29. DEPO-MEDROL [Concomitant]
     Dosage: UNK
     Dates: start: 19990101
  30. ACETYLSALICYLIC ACID SRT [Concomitant]
     Dosage: 1/2 TAB QD
     Route: 048
     Dates: start: 20011127, end: 20011211
  31. NITROGLYCERIN [Concomitant]
     Dosage: 0.4 MG, Q5MIN X3
     Route: 060
     Dates: start: 20011127, end: 20011127
  32. TRIAMCINOLONE [Concomitant]
     Dosage: UNK
     Dates: start: 20011127
  33. MAGNESIUM SULFATE [Concomitant]
     Dosage: 6 MG, (ONE HR PRIOR TO TRANSPORT TO O.R.)
     Route: 030
     Dates: start: 20011204, end: 20011204
  34. HEPARIN [Concomitant]
     Dosage: 1000 U, UNK
     Route: 042
     Dates: start: 20011204
  35. EPHEDRINE [Concomitant]
     Route: 042

REACTIONS (7)
  - DEATH [None]
  - RENAL FAILURE ACUTE [None]
  - CEREBROVASCULAR ACCIDENT [None]
  - INJURY [None]
  - PAIN [None]
  - UNEVALUABLE EVENT [None]
  - RENAL FAILURE [None]
